FAERS Safety Report 6965560-5 (Version None)
Quarter: 2010Q3

REPORT INFORMATION
  Report Type: 
  Country: None (occurrence: None)
  Receive Date: 20100903
  Receipt Date: 20100823
  Transmission Date: 20110219
  Serious: Yes (Hospitalization, Disabling)
  Sender: FDA-Public Use
  Company Number: FR-ELI_LILLY_AND_COMPANY-FR201008006144

PATIENT
  Sex: Male
  Weight: 70 kg

DRUGS (1)
  1. GEMZAR [Suspect]
     Dosage: 1000 MG/M2, UNKNOWN
     Route: 065
     Dates: start: 20100121, end: 20100517

REACTIONS (6)
  - ARTHRALGIA [None]
  - DEPRESSION [None]
  - GENERAL PHYSICAL HEALTH DETERIORATION [None]
  - INFLAMMATION [None]
  - INSOMNIA [None]
  - OEDEMA PERIPHERAL [None]
